FAERS Safety Report 5234457-3 (Version None)
Quarter: 2007Q1

REPORT INFORMATION
  Report Type: 
  Country: None (occurrence: None)
  Receive Date: 20070209
  Receipt Date: 20070131
  Transmission Date: 20070707
  Serious: Yes (Other)
  Sender: FDA-Public Use
  Company Number: FR-GLAXOSMITHKLINE-B0456643A

PATIENT
  Age: 86 Year
  Sex: Female

DRUGS (3)
  1. LAMICTAL [Suspect]
     Indication: EPILEPSY
     Route: 065
  2. GARDAN TAB [Concomitant]
     Indication: EPILEPSY
     Route: 065
  3. NORSET [Concomitant]
     Route: 065
     Dates: start: 20061201

REACTIONS (3)
  - EPILEPSY [None]
  - HYPONATRAEMIA [None]
  - INAPPROPRIATE ANTIDIURETIC HORMONE SECRETION [None]
